FAERS Safety Report 8619536-2 (Version None)
Quarter: 2012Q3

REPORT INFORMATION
  Report Type: 
  Country: None (occurrence: None)
  Receive Date: 20120824
  Receipt Date: 20120404
  Transmission Date: 20120928
  Serious: No
  Sender: FDA-Public Use
  Company Number: US-ASTRAZENECA-2012SE22614

PATIENT
  Age: 61 Year
  Sex: Female
  Weight: 71.2 kg

DRUGS (2)
  1. SYMBICORT [Suspect]
     Indication: ASTHMA
     Dosage: 160/4.5 MCG  TWO PUFFS TWO TIMES A DAY
     Route: 055
     Dates: start: 20090101, end: 20120301
  2. FLUTICASONE PROPIONATE [Suspect]
     Route: 065

REACTIONS (5)
  - GAIT DISTURBANCE [None]
  - EYE ALLERGY [None]
  - BLOOD PRESSURE INCREASED [None]
  - INTENTIONAL DRUG MISUSE [None]
  - EYE DISCHARGE [None]
